FAERS Safety Report 5495679-X (Version None)
Quarter: 2007Q4

REPORT INFORMATION
  Report Type: 
  Country: None (occurrence: None)
  Receive Date: 20071018
  Receipt Date: 20070126
  Transmission Date: 20080405
  Serious: Yes (Other)
  Sender: FDA-Public Use
  Company Number: 2006155130

PATIENT
  Age: 21 Year
  Sex: Male

DRUGS (3)
  1. GABAPENTIN [Suspect]
     Indication: CONVULSION
     Dosage: 500 MG (100 MG, 5 IN 1 D)
     Dates: start: 20061001
  2. KEPPRA [Concomitant]
  3. ALL OTHER THERAPEUTIC PRODUCTS (ALL OTHER THERAPEUTIC PRODUCTS) [Concomitant]

REACTIONS (2)
  - CONVULSION [None]
  - DRUG INEFFECTIVE [None]
